FAERS Safety Report 19946619 (Version 1)
Quarter: 2021Q4

REPORT INFORMATION
  Report Type: Spontaneous
  Country: DE (occurrence: DE)
  Receive Date: 20211012
  Receipt Date: 20211012
  Transmission Date: 20220303
  Serious: Yes (Hospitalization)
  Sender: FDA-Public Use
  Company Number: DE-ADRED-05742-04

PATIENT
  Age: 69 Year
  Sex: Female
  Weight: 49 kg

DRUGS (14)
  1. GEMCITABINE [Suspect]
     Active Substance: GEMCITABINE
     Indication: Product used for unknown indication
     Dosage: NK MG
  2. CARBOPLATIN [Suspect]
     Active Substance: CARBOPLATIN
     Indication: Product used for unknown indication
     Dosage: NK MG
  3. ACETYLCYSTEINE [Concomitant]
     Active Substance: ACETYLCYSTEINE
     Dosage: 600 MG, 1-0-0-0, BRAUSETABLETTEN
     Route: 048
  4. POLYETHYLENE GLYCOLS [Concomitant]
     Active Substance: POLYETHYLENE GLYCOLS
     Dosage: 1-0-0-0
     Route: 048
  5. MORPHINE SULFATE [Concomitant]
     Active Substance: MORPHINE SULFATE
     Dosage: 10 MG, 1-0-1-0, RETARD-TABLETTEN
     Route: 048
  6. LAXANS-RATIOPHARM PICO [Concomitant]
     Dosage: 7-0-0-0, TROPFEN
     Route: 048
  7. METAMIZOLE [Concomitant]
     Active Substance: METAMIZOLE
     Dosage: 500 MG/ML, 30-30-30-30, TROPFEN
     Route: 048
  8. MORPHIN MERCK [Concomitant]
     Dosage: BEDARF 4, TROPFEN
     Route: 048
  9. PANTOPRAZOLE [Concomitant]
     Active Substance: PANTOPRAZOLE
     Dosage: 40 MG, 1-0-0-0, TABLETTEN
     Route: 048
  10. TAVOR (LORAZEPAM) [Concomitant]
     Active Substance: LORAZEPAM
     Dosage: BEDARF, SCHMELZTABLETTEN
     Route: 048
  11. CANDESARTAN [Concomitant]
     Active Substance: CANDESARTAN
     Dosage: 4 MG, 1-0-0-0, TABLETTEN
     Route: 048
  12. FRAGMIN [Concomitant]
     Active Substance: DALTEPARIN SODIUM
     Dosage: 0-0-1-0, FERTIGSPRITZEN
     Route: 058
  13. MAALOXAN                           /00082501/ [Concomitant]
     Dosage: BEDARF
     Route: 048
  14. CHOLECALCIFEROL [Concomitant]
     Active Substance: CHOLECALCIFEROL
     Dosage: 20000 IE, FREITAG 1, CAPSULE
     Route: 048

REACTIONS (3)
  - Flank pain [Recovering/Resolving]
  - Pyrexia [Recovering/Resolving]
  - Chromaturia [Recovering/Resolving]
